FAERS Safety Report 10060726 (Version 1)
Quarter: 2014Q2

REPORT INFORMATION
  Report Type: Report from Study
  Country: US (occurrence: US)
  Receive Date: 20140404
  Receipt Date: 20140404
  Transmission Date: 20141212
  Serious: Yes (Hospitalization, Other)
  Sender: FDA-Public Use
  Company Number: US-EXELIXIS-XL18414004140

PATIENT
  Age: 79 Year
  Sex: 0

DRUGS (1)
  1. XL184 [Suspect]
     Indication: NON-SMALL CELL LUNG CANCER
     Dosage: 60 MG, QD
     Route: 048
     Dates: start: 20131126, end: 20140129

REACTIONS (5)
  - Dyspnoea [Unknown]
  - Hypocalcaemia [Unknown]
  - Muscular weakness [Unknown]
  - Pleural effusion [Unknown]
  - Embolism [Unknown]
